FAERS Safety Report 7444774-4 (Version None)
Quarter: 2011Q2

REPORT INFORMATION
  Report Type: 
  Country: None (occurrence: None)
  Receive Date: 20110427
  Receipt Date: 20110427
  Transmission Date: 20111010
  Serious: Yes (Other)
  Sender: FDA-Public Use
  Company Number: None

PATIENT
  Age: 81 Year
  Sex: Male
  Weight: 102.1 kg

DRUGS (1)
  1. TAPENTADOL [Suspect]
     Indication: PAIN
     Dosage: 75MG QID PO
     Route: 048
     Dates: start: 20101201, end: 20101203

REACTIONS (3)
  - DIZZINESS [None]
  - FALL [None]
  - ORTHOSTATIC HYPOTENSION [None]
